FAERS Safety Report 15888403 (Version 1)
Quarter: 2019Q1

REPORT INFORMATION
  Report Type: Spontaneous
  Country: US (occurrence: US)
  Receive Date: 20190107
  Receipt Date: 20190107
  Transmission Date: 20190417
  Serious: No
  Sender: FDA-Public Use
  Company Number: None

PATIENT
  Age: 63 Year
  Sex: Female

DRUGS (2)
  1. CYCLOSPORINE NON- MOD CAP (AMERICAN [Concomitant]
  2. TACROLIMUS. [Suspect]
     Active Substance: TACROLIMUS
     Dates: start: 201810

REACTIONS (2)
  - Drug intolerance [None]
  - Tremor [None]

NARRATIVE: CASE EVENT DATE: 20190107
